FAERS Safety Report 5744667-4 (Version None)
Quarter: 2008Q2

REPORT INFORMATION
  Report Type: 
  Country: None (occurrence: None)
  Receive Date: 20080520
  Receipt Date: 20080508
  Transmission Date: 20081010
  Serious: Yes (Life-Threatening, Hospitalization, Other)
  Sender: FDA-Public Use
  Company Number: US-PFIZER INC-2008039980

PATIENT
  Age: 53 Year
  Sex: Male
  Weight: 68.9 kg

DRUGS (4)
  1. XANAX [Suspect]
     Dates: start: 20080118, end: 20080118
  2. ALCOHOL [Suspect]
  3. PEG-INTRON [Suspect]
     Indication: HEPATITIS C
     Dosage: DAILY DOSE:120MCG
     Route: 058
     Dates: start: 20071027, end: 20080111
  4. REBETOL [Suspect]
     Indication: HEPATITIS C
     Route: 048
     Dates: start: 20071027, end: 20080111

REACTIONS (4)
  - DEPRESSION [None]
  - INFLUENZA LIKE ILLNESS [None]
  - INSOMNIA [None]
  - SUICIDE ATTEMPT [None]
